FAERS Safety Report 13524540 (Version 2)
Quarter: 2017Q2

REPORT INFORMATION
  Report Type: Report from Study
  Country: US (occurrence: US)
  Receive Date: 20170508
  Receipt Date: 20170525
  Transmission Date: 20170830
  Serious: Yes (Death, Hospitalization)
  Sender: FDA-Public Use
  Company Number: US-ACTELION-A-NJ2016-138826

PATIENT
  Age: 54 Year
  Sex: Male
  Weight: 99.77 kg

DRUGS (15)
  1. UPTRAVI [Suspect]
     Active Substance: SELEXIPAG
     Indication: PULMONARY ARTERIAL HYPERTENSION
     Dosage: 1600 MCG, BID
     Route: 048
  2. ALLOPURINOL. [Concomitant]
     Active Substance: ALLOPURINOL
  3. LORAZEPAM. [Concomitant]
     Active Substance: LORAZEPAM
  4. METOLAZONE. [Concomitant]
     Active Substance: METOLAZONE
  5. TEMAZEPAM. [Concomitant]
     Active Substance: TEMAZEPAM
  6. OPSUMIT [Suspect]
     Active Substance: MACITENTAN
     Indication: PULMONARY ARTERIAL HYPERTENSION
     Dosage: 10 MG, QD
     Route: 048
     Dates: start: 20150812
  7. SPIRONOLACTONE. [Concomitant]
     Active Substance: SPIRONOLACTONE
  8. CITALOPRAM [Concomitant]
     Active Substance: CITALOPRAM HYDROBROMIDE
  9. WARFARIN [Concomitant]
     Active Substance: WARFARIN
  10. ROPINIROLE. [Concomitant]
     Active Substance: ROPINIROLE
  11. TORSEMIDE. [Concomitant]
     Active Substance: TORSEMIDE
  12. GABAPENTIN. [Concomitant]
     Active Substance: GABAPENTIN
  13. RIOCIGUAT [Concomitant]
     Active Substance: RIOCIGUAT
  14. PRAVASTATIN. [Concomitant]
     Active Substance: PRAVASTATIN
  15. OXYGEN. [Concomitant]
     Active Substance: OXYGEN
     Dosage: 2 L/MIN, UNK

REACTIONS (23)
  - Fall [Unknown]
  - Dyspnoea [Unknown]
  - Rib fracture [Unknown]
  - Pulmonary hypertension [Unknown]
  - Septic shock [Unknown]
  - Atrial fibrillation [Unknown]
  - Vomiting [Unknown]
  - Oxygen saturation decreased [Unknown]
  - Chest pain [Unknown]
  - Cardiac failure congestive [Unknown]
  - Fluid retention [Unknown]
  - Retroperitoneal haematoma [Unknown]
  - Pneumonia [Unknown]
  - Pain in jaw [Unknown]
  - Nausea [Unknown]
  - Death [Fatal]
  - Pain [Unknown]
  - Acute respiratory failure [Unknown]
  - Acute kidney injury [Unknown]
  - Muscle spasms [Unknown]
  - Lumbar vertebral fracture [Unknown]
  - Haemothorax [Unknown]
  - Agitation [Unknown]

NARRATIVE: CASE EVENT DATE: 20170428
